FAERS Safety Report 23108077 (Version 1)
Quarter: 2023Q4

REPORT INFORMATION
  Report Type: Spontaneous
  Country: DE (occurrence: DE)
  Receive Date: 20231026
  Receipt Date: 20231026
  Transmission Date: 20240110
  Serious: Yes (Other)
  Sender: FDA-Public Use
  Company Number: DE-JUBILANT CADISTA PHARMACEUTICALS-2023DE001311

PATIENT
  Age: 41 Year
  Sex: Male

DRUGS (1)
  1. NIACIN [Suspect]
     Active Substance: NIACIN
     Indication: Nutritional supplementation
     Dosage: 6.6 MG PER DAY

REACTIONS (3)
  - Maculopathy [Recovering/Resolving]
  - Visual impairment [Recovering/Resolving]
  - Cystoid macular oedema [Recovering/Resolving]
